FAERS Safety Report 12181313 (Version 1)
Quarter: 2016Q1

REPORT INFORMATION
  Report Type: Spontaneous
  Country: US (occurrence: US)
  Receive Date: 20160315
  Receipt Date: 20160315
  Transmission Date: 20160526
  Serious: No
  Sender: FDA-Public Use
  Company Number: US-ALLERGAN-1611779US

PATIENT
  Age: 51 Year
  Sex: Female

DRUGS (9)
  1. VIBERZI [Suspect]
     Active Substance: ELUXADOLINE
     Indication: IRRITABLE BOWEL SYNDROME
     Dosage: 100 MG, BID
     Route: 048
     Dates: start: 201601, end: 20160205
  2. OMEGA 3 [Concomitant]
     Active Substance: OMEGA-3 FATTY ACIDS
     Indication: NUTRITIONAL SUPPLEMENTATION
     Dosage: UNK UNK, QPM
     Route: 048
  3. TAMOXIFEN [Concomitant]
     Active Substance: TAMOXIFEN
     Indication: BREAST CANCER
     Dosage: 20 MG, QD
     Route: 048
  4. ABILIFY [Concomitant]
     Active Substance: ARIPIPRAZOLE
     Indication: DEPRESSED MOOD
     Dosage: 10 MG, QD
     Route: 048
  5. MODAFINIL. [Concomitant]
     Active Substance: MODAFINIL
     Indication: NARCOLEPSY
     Dosage: 200 MG, QD
     Route: 048
  6. LAMICTAL [Concomitant]
     Active Substance: LAMOTRIGINE
     Indication: DEPRESSION
     Dosage: 200 MG, BID
     Route: 048
  7. MELATONIN [Concomitant]
     Active Substance: MELATONIN
     Indication: SLEEP DISORDER
  8. TENORMIN [Concomitant]
     Active Substance: ATENOLOL
     Indication: VENTRICULAR TACHYCARDIA
     Dosage: 25 MG, QD
     Route: 048
  9. CELEXA [Concomitant]
     Active Substance: CITALOPRAM HYDROBROMIDE
     Indication: DEPRESSION
     Dosage: 40 MG, QPM
     Route: 048

REACTIONS (2)
  - Insomnia [Not Recovered/Not Resolved]
  - Anxiety [Not Recovered/Not Resolved]

NARRATIVE: CASE EVENT DATE: 20160201
